FAERS Safety Report 9369396 (Version 1)
Quarter: 2013Q2

REPORT INFORMATION
  Report Type: Spontaneous
  Country: DE (occurrence: DE)
  Receive Date: 20130626
  Receipt Date: 20130626
  Transmission Date: 20140414
  Serious: Yes (Hospitalization)
  Sender: FDA-Public Use
  Company Number: DE-ROCHE-1241580

PATIENT
  Age: 40 Year
  Sex: Female

DRUGS (3)
  1. TOCILIZUMAB [Suspect]
     Indication: NEUROMYELITIS OPTICA
     Route: 065
     Dates: start: 201201
  2. TOCILIZUMAB [Suspect]
     Route: 065
     Dates: start: 201202
  3. TOCILIZUMAB [Suspect]
     Route: 065
     Dates: start: 201203

REACTIONS (1)
  - Neuromyelitis optica [Recovered/Resolved]
